FAERS Safety Report 10760704 (Version 1)
Quarter: 2015Q1

REPORT INFORMATION
  Report Type: Spontaneous
  Country: CA (occurrence: None)
  Receive Date: 20150202
  Receipt Date: 20150202
  Transmission Date: 20150721
  Serious: Yes (Life-Threatening, Hospitalization)
  Sender: FDA-Public Use
  Company Number: NSR_01795_2015

PATIENT
  Age: 39 Year
  Sex: Male

DRUGS (5)
  1. DETOMIDINE [Suspect]
     Active Substance: DETOMIDINE
     Indication: PRODUCT USED FOR UNKNOWN INDICATION
     Route: 048
  2. ROMIFIDINE [Suspect]
     Active Substance: ROMIFIDINE
     Indication: PRODUCT USED FOR UNKNOWN INDICATION
     Dosage: UNKNOWN UNTIL NOT CONTINUING
     Route: 030
  3. PENTOBARBITAL (PENTOBARBITAL) [Suspect]
     Active Substance: PENTOBARBITAL
     Indication: PRODUCT USED FOR UNKNOWN INDICATION
     Dosage: UNKNOWN UNTIL NOT CONTINUING
     Route: 030
  4. PROPRANOLOL [Suspect]
     Active Substance: PROPRANOLOL\PROPRANOLOL HYDROCHLORIDE
     Indication: PRODUCT USED FOR UNKNOWN INDICATION
     Route: 048
  5. ACEPROMAZINE [Suspect]
     Active Substance: ACEPROMAZINE
     Indication: PRODUCT USED FOR UNKNOWN INDICATION
     Dosage: UNKNOWN UNTIL NOT CONTINUING

REACTIONS (6)
  - Respiratory depression [None]
  - Miosis [None]
  - Intentional overdose [None]
  - Suicide attempt [None]
  - Bradycardia [None]
  - Hypothermia [None]
